FAERS Safety Report 8135513-2 (Version None)
Quarter: 2012Q1

REPORT INFORMATION
  Report Type: 
  Country: None (occurrence: None)
  Receive Date: 20120214
  Receipt Date: 20120210
  Transmission Date: 20120608
  Serious: Yes (Other)
  Sender: FDA-Public Use
  Company Number: SG-BAYER-2012-013757

PATIENT
  Age: 31 Year
  Sex: Female

DRUGS (3)
  1. ACETYLSALICYLIC ACID SRT [Suspect]
     Route: 048
  2. ACETAMINOPHEN [Suspect]
     Route: 048
  3. ACETYLSALICYLIC ACID SRT [Suspect]

REACTIONS (1)
  - ANGIOEDEMA [None]
